FAERS Safety Report 6159204-2 (Version None)
Quarter: 2009Q2

REPORT INFORMATION
  Report Type: 
  Country: None (occurrence: None)
  Receive Date: 20090417
  Receipt Date: 20090318
  Transmission Date: 20091009
  Serious: Yes (Death)
  Sender: FDA-Public Use
  Company Number: JP-ROCHE-623737

PATIENT
  Age: 26 Year
  Sex: Male

DRUGS (1)
  1. CELLCEPT [Suspect]
     Indication: IMMUNOSUPPRESSION
     Route: 048

REACTIONS (1)
  - CARDIAC FAILURE [None]
